FAERS Safety Report 7407231-7 (Version None)
Quarter: 2011Q2

REPORT INFORMATION
  Report Type: 
  Country: None (occurrence: None)
  Receive Date: 20110411
  Receipt Date: 20110403
  Transmission Date: 20111010
  Serious: Yes (Hospitalization)
  Sender: FDA-Public Use
  Company Number: US-B.I. PHARMACEUTICALS,INC./RIDGEFIELD-2011-BP-10277BP

PATIENT
  Sex: Male

DRUGS (1)
  1. PRADAXA [Suspect]
     Indication: ATRIAL FIBRILLATION
     Dosage: 150 MG
     Route: 048
     Dates: start: 20101201

REACTIONS (7)
  - ASTHENIA [None]
  - URINARY TRACT INFECTION [None]
  - ANAEMIA [None]
  - BLOOD COUNT ABNORMAL [None]
  - BALANCE DISORDER [None]
  - FALL [None]
  - LACERATION [None]
